FAERS Safety Report 10220581 (Version 1)
Quarter: 2014Q2

REPORT INFORMATION
  Report Type: Report from Study
  Country: US (occurrence: US)
  Receive Date: 20140606
  Receipt Date: 20140606
  Transmission Date: 20141212
  Serious: Yes (Death, Other)
  Sender: FDA-Public Use
  Company Number: US-ALEXION PHARMACEUTICALS INC.-A201402182

PATIENT
  Sex: 0

DRUGS (2)
  1. SOLIRIS [Suspect]
     Indication: HAEMOLYTIC URAEMIC SYNDROME
     Dosage: 900 MG, QW
     Route: 042
     Dates: start: 20140510
  2. PREDNISONE [Concomitant]
     Indication: STEROID THERAPY
     Dosage: UNK, QD
     Route: 065
     Dates: start: 20140512, end: 20140530

REACTIONS (9)
  - Death [Fatal]
  - Acute coronary syndrome [Unknown]
  - Acute graft versus host disease in skin [Unknown]
  - Renal failure acute [Unknown]
  - Diabetes mellitus [Unknown]
  - Thrombotic microangiopathy [Unknown]
  - Thrombocytopenia [Unknown]
  - Hypertension [Unknown]
  - Diarrhoea [Unknown]
